FAERS Safety Report 9123236 (Version 1)
Quarter: 2013Q1

REPORT INFORMATION
  Report Type: Spontaneous
  Country: US (occurrence: None)
  Receive Date: 20130131
  Receipt Date: 20130131
  Transmission Date: 20140127
  Serious: Yes (Death)
  Sender: FDA-Public Use
  Company Number: DKLU1088291

PATIENT
  Age: 19 Year
  Sex: Female

DRUGS (1)
  1. DESOXYN [Suspect]
     Indication: PRODUCT USED FOR UNKNOWN INDICATION
     Route: 048

REACTIONS (8)
  - Drug abuse [None]
  - Cardiac arrest [None]
  - Agitation [None]
  - Aggression [None]
  - Blood pressure systolic increased [None]
  - Neurological symptom [None]
  - Stillbirth [None]
  - Exposure during pregnancy [None]
